FAERS Safety Report 8949994 (Version 2)
Quarter: 2012Q4

REPORT INFORMATION
  Report Type: 
  Country: US (occurrence: US)
  Receive Date: 20121205
  Receipt Date: 20121213
  Transmission Date: 20130627
  Serious: Yes (Hospitalization)
  Sender: FDA-Public Use
  Company Number: US-GILEAD-2012-0065678

PATIENT
  Age: 75 Year
  Sex: Female

DRUGS (1)
  1. LETAIRIS [Suspect]
     Indication: PULMONARY ARTERIAL HYPERTENSION
     Route: 048
     Dates: start: 20120806, end: 20121121

REACTIONS (4)
  - Oxygen saturation decreased [Recovering/Resolving]
  - Sinusitis [Recovering/Resolving]
  - Cough [Recovering/Resolving]
  - Rash generalised [Recovering/Resolving]
